FAERS Safety Report 25636586 (Version 2)
Quarter: 2025Q3

REPORT INFORMATION
  Report Type: Report from Study
  Country: US (occurrence: US)
  Receive Date: 20250804
  Receipt Date: 20250811
  Transmission Date: 20251021
  Serious: Yes (Disabling)
  Sender: ABBVIE
  Company Number: US-ABBVIE-6397479

PATIENT
  Sex: Male

DRUGS (2)
  1. LINZESS [Suspect]
     Active Substance: LINACLOTIDE
     Indication: Irritable bowel syndrome
     Dosage: FORM STRENGTH: 72 MILLIGRAM?STOP DATE TEXT: 2-3 MONTHS AGO
     Route: 048
     Dates: start: 2022, end: 2025
  2. CARBIDOPA\LEVODOPA [Concomitant]
     Active Substance: CARBIDOPA\LEVODOPA
     Indication: Parkinson^s disease

REACTIONS (8)
  - Disability [Unknown]
  - Defaecation urgency [Not Recovered/Not Resolved]
  - Abdominal discomfort [Not Recovered/Not Resolved]
  - Unevaluable event [Unknown]
  - Poor quality sleep [Not Recovered/Not Resolved]
  - Anxiety [Unknown]
  - Irritable bowel syndrome [Not Recovered/Not Resolved]
  - Bowel movement irregularity [Not Recovered/Not Resolved]
